FAERS Safety Report 5269680-5 (Version None)
Quarter: 2007Q1

REPORT INFORMATION
  Report Type: 
  Country: None (occurrence: None)
  Receive Date: 20070320
  Receipt Date: 20070307
  Transmission Date: 20070707
  Serious: Yes (Other)
  Sender: FDA-Public Use
  Company Number: NO-PFIZER INC-2007018435

PATIENT
  Sex: Female

DRUGS (3)
  1. DALACIN [Suspect]
     Indication: INFECTION
     Route: 048
  2. ATROVENT [Concomitant]
  3. CIPROFLOXACIN [Concomitant]
     Route: 048

REACTIONS (4)
  - DYSPNOEA [None]
  - GASTRIC ULCER [None]
  - KETOACIDOSIS [None]
  - PRODUCTIVE COUGH [None]
